FAERS Safety Report 25836025 (Version 1)
Quarter: 2025Q3

REPORT INFORMATION
  Report Type: Spontaneous
  Country: EU (occurrence: EU)
  Receive Date: 20250923
  Receipt Date: 20250923
  Transmission Date: 20251021
  Serious: Yes (Hospitalization)
  Sender: JOHNSON AND JOHNSON
  Company Number: None

PATIENT
  Age: 81 Year
  Sex: Female
  Weight: 67 kg

DRUGS (12)
  1. DARZALEX [Suspect]
     Active Substance: DARATUMUMAB
     Indication: Plasma cell myeloma
     Dosage: 1 TO 9 HOURS AFTER A DAY, FOLLOWING A 6-DAY BREAK
     Route: 042
     Dates: start: 20250219
  2. LENALIDOMIDE [Suspect]
     Active Substance: LENALIDOMIDE
     Indication: Plasma cell myeloma
     Dosage: 1 TO 8 P.M.
     Route: 048
     Dates: start: 20250219
  3. VALACYCLOVIR HYDROCHLORIDE [Concomitant]
     Active Substance: VALACYCLOVIR HYDROCHLORIDE
     Indication: Opportunistic infection prophylaxis
     Dosage: 1 TO 8 A.M., 1 TO 8 P.M.
     Route: 048
     Dates: start: 20250219
  4. BACTRIM [Concomitant]
     Active Substance: SULFAMETHOXAZOLE\TRIMETHOPRIM
     Indication: Opportunistic infection prophylaxis
     Dosage: 1 TABLET ON MONDAY, WEDNESDAY AND FRIDAY
     Route: 048
     Dates: start: 20250219
  5. LEUCOVORIN CALCIUM [Concomitant]
     Active Substance: LEUCOVORIN CALCIUM
     Indication: Vitamin supplementation
     Dosage: 1 TABLET IN THE MORNING ONCE A WEEK
     Route: 048
     Dates: start: 20250223
  6. ELIQUIS 5 mg, compressed on film [Concomitant]
     Indication: Thrombosis prophylaxis
     Route: 048
     Dates: start: 20250219
  7. LEVOTHYROXINE SODIUM [Concomitant]
     Active Substance: LEVOTHYROXINE SODIUM
     Indication: Hypothyroidism
     Route: 048
     Dates: start: 20250219
  8. LERCANIDIPINE HYDROCHLORIDE [Concomitant]
     Active Substance: LERCANIDIPINE HYDROCHLORIDE
     Indication: Hypertension
     Dosage: 1 TO 8 HOURS
     Route: 048
     Dates: start: 20250219
  9. TANGANILPRO 500 mg, tablet [Concomitant]
     Indication: Meniere^s disease
     Route: 048
     Dates: start: 20250219
  10. DOLIPRANE 500 mg, capsule [Concomitant]
     Indication: Drug toxicity prophylaxis
     Route: 048
     Dates: start: 20250219
  11. DESLORATADINE [Concomitant]
     Active Substance: DESLORATADINE
     Indication: Drug toxicity prophylaxis
     Route: 048
     Dates: start: 20250219
  12. DEXAMETHASONE [Concomitant]
     Active Substance: DEXAMETHASONE
     Indication: Drug toxicity prophylaxis
     Route: 048
     Dates: start: 20250219

REACTIONS (6)
  - Tremor [Recovering/Resolving]
  - Decreased appetite [Not Recovered/Not Resolved]
  - Pain [Recovered/Resolved]
  - Constipation [Not Recovered/Not Resolved]
  - Fatigue [Not Recovered/Not Resolved]
  - Nausea [Recovered/Resolved]

NARRATIVE: CASE EVENT DATE: 20250219
